FAERS Safety Report 4922368-X (Version None)
Quarter: 2006Q1

REPORT INFORMATION
  Report Type: 
  Country: None (occurrence: None)
  Receive Date: 20060224
  Receipt Date: 20051013
  Transmission Date: 20060701
  Serious: Yes (Other)
  Sender: FDA-Public Use
  Company Number: US-MERCK-0510USA07023

PATIENT
  Age: 34 Year
  Sex: Female
  Weight: 73 kg

DRUGS (10)
  1. VIOXX [Suspect]
     Indication: BACK PAIN
     Route: 048
     Dates: start: 19990530, end: 20021201
  2. VIOXX [Suspect]
     Indication: RHEUMATOID ARTHRITIS
     Route: 048
     Dates: start: 19990530, end: 20021201
  3. PRILOSEC [Concomitant]
     Indication: DYSPEPSIA
     Route: 065
  4. CLOTRIMAZOLE [Concomitant]
     Indication: BACTERIAL INFECTION
     Route: 065
  5. LORAZEPAM [Concomitant]
     Indication: ANXIETY
     Route: 065
  6. FLOVENT [Concomitant]
     Indication: ASTHMA
     Route: 065
  7. BISACODYL [Concomitant]
     Indication: CONSTIPATION
     Route: 065
  8. RANITIDINE [Concomitant]
     Indication: DYSPEPSIA
     Route: 065
  9. LEVAQUIN [Concomitant]
     Indication: BACTERIAL INFECTION
     Route: 065
  10. OMNICEF [Concomitant]
     Indication: BACTERIAL INFECTION
     Route: 065

REACTIONS (7)
  - DIABETES MELLITUS [None]
  - HYPERTENSION [None]
  - HYPOVITAMINOSIS [None]
  - INJURY [None]
  - IRON DEFICIENCY [None]
  - OBESITY [None]
  - SILENT MYOCARDIAL INFARCTION [None]
